FAERS Safety Report 25596573 (Version 1)
Quarter: 2025Q3

REPORT INFORMATION
  Report Type: Spontaneous
  Country: CN (occurrence: CN)
  Receive Date: 20250723
  Receipt Date: 20250723
  Transmission Date: 20251021
  Serious: Yes (Life-Threatening, Hospitalization, Other)
  Sender: PFIZER
  Company Number: CN-PFIZER INC-PV202500087061

PATIENT
  Age: 33 Year
  Sex: Female
  Weight: 64 kg

DRUGS (1)
  1. HEMABATE [Suspect]
     Active Substance: CARBOPROST TROMETHAMINE
     Indication: Post procedural haemorrhage
     Dosage: 250 UG, 1X/DAY
     Dates: start: 20250717, end: 20250717

REACTIONS (2)
  - Anaphylactic shock [Recovering/Resolving]
  - Off label use [Unknown]

NARRATIVE: CASE EVENT DATE: 20250717
